FAERS Safety Report 17102802 (Version 1)
Quarter: 2019Q4

REPORT INFORMATION
  Report Type: Other
  Country: US (occurrence: US)
  Receive Date: 20191203
  Receipt Date: 20191203
  Transmission Date: 20200122
  Serious: Yes (Hospitalization)
  Sender: FDA-Public Use
  Company Number: US-APTAPHARMA INC.-2077401

PATIENT
  Age: 16 Year
  Sex: Female

DRUGS (4)
  1. ACETAMINOPHEN. [Concomitant]
     Active Substance: ACETAMINOPHEN
     Route: 065
  2. KETOROLAC [Suspect]
     Active Substance: KETOROLAC TROMETHAMINE
     Route: 042
  3. IBUPROFEN ORAL [Suspect]
     Active Substance: IBUPROFEN
     Indication: ABDOMINAL PAIN
     Route: 048
  4. CELECOXIB. [Suspect]
     Active Substance: CELECOXIB

REACTIONS (3)
  - Gastritis [Recovered/Resolved]
  - Symptom masked [Recovered/Resolved]
  - Gastric ulcer [Recovered/Resolved]
